FAERS Safety Report 15781698 (Version 3)
Quarter: 2019Q1

REPORT INFORMATION
  Report Type: Spontaneous
  Country: US (occurrence: US)
  Receive Date: 20190102
  Receipt Date: 20190226
  Transmission Date: 20190417
  Serious: No
  Sender: FDA-Public Use
  Company Number: US-ASTRAZENECA-2018SF67125

PATIENT
  Sex: Male
  Weight: 117 kg

DRUGS (2)
  1. TUDORZA PRESSAIR [Suspect]
     Active Substance: ACLIDINIUM BROMIDE
     Indication: CHRONIC OBSTRUCTIVE PULMONARY DISEASE
     Route: 055
     Dates: start: 201810
  2. TUDORZA PRESSAIR [Suspect]
     Active Substance: ACLIDINIUM BROMIDE
     Indication: CHRONIC OBSTRUCTIVE PULMONARY DISEASE
     Dosage: 1 PUFF DAILY
     Route: 055

REACTIONS (5)
  - Device malfunction [Unknown]
  - Fatigue [Unknown]
  - Product dose omission [Unknown]
  - Intentional product misuse [Unknown]
  - Circumstance or information capable of leading to medication error [Unknown]
